FAERS Safety Report 5053897-9 (Version None)
Quarter: 2006Q3

REPORT INFORMATION
  Report Type: 
  Country: None (occurrence: None)
  Receive Date: 20060718
  Receipt Date: 20060706
  Transmission Date: 20061208
  Serious: Yes (Other)
  Sender: FDA-Public Use
  Company Number: PHHO2006BR11153

PATIENT
  Age: 23 Year
  Sex: Female
  Weight: 57 kg

DRUGS (1)
  1. ZELMAC / HTF 919A [Suspect]
     Indication: CONSTIPATION
     Dosage: 6 MG, BID
     Route: 048
     Dates: start: 20060701

REACTIONS (7)
  - ABDOMINAL PAIN UPPER [None]
  - BACK DISORDER [None]
  - BACK PAIN [None]
  - CHEST PAIN [None]
  - DYSENTERY [None]
  - DYSPNOEA [None]
  - HEADACHE [None]
